FAERS Safety Report 18231911 (Version 1)
Quarter: 2020Q3

REPORT INFORMATION
  Report Type: Spontaneous
  Country: US (occurrence: US)
  Receive Date: 20200903
  Receipt Date: 20200903
  Transmission Date: 20201103
  Serious: Yes (Death, Hospitalization)
  Sender: FDA-Public Use
  Company Number: None

PATIENT
  Age: 57 Year
  Sex: Female

DRUGS (24)
  1. AMBRISENTAN 5MG TAB [Suspect]
     Active Substance: AMBRISENTAN
     Indication: PRODUCT USED FOR UNKNOWN INDICATION
     Dosage: 1 TAB (5MG) QD PO
     Route: 048
     Dates: start: 20200129, end: 20200902
  2. AZELASTINE. [Concomitant]
     Active Substance: AZELASTINE HYDROCHLORIDE
  3. LEVOCETIRIZI [Concomitant]
  4. OXYCODONE AND ACETAMINOPHEN [Concomitant]
     Active Substance: ACETAMINOPHEN\OXYCODONE HYDROCHLORIDE
  5. TIZANIDINE. [Concomitant]
     Active Substance: TIZANIDINE
  6. VALGANCICLOV [Concomitant]
  7. FAMOTIDINE. [Concomitant]
     Active Substance: FAMOTIDINE
  8. HYDROCO/APAP [Concomitant]
     Active Substance: ACETAMINOPHEN\HYDROCODONE
  9. PREDNISONE. [Concomitant]
     Active Substance: PREDNISONE
  10. CIPRODEX [Concomitant]
     Active Substance: CIPROFLOXACIN HYDROCHLORIDE\DEXAMETHASONE
  11. DICLOFENAC [Concomitant]
     Active Substance: DICLOFENAC
  12. FLUOXETINE [Concomitant]
     Active Substance: FLUOXETINE HYDROCHLORIDE
  13. GABAPENTIN. [Concomitant]
     Active Substance: GABAPENTIN
  14. IBUPROFEN. [Concomitant]
     Active Substance: IBUPROFEN
  15. TRAZODONE [Concomitant]
     Active Substance: TRAZODONE HYDROCHLORIDE
  16. ZOLIPDEM [Concomitant]
     Active Substance: ZOLPIDEM TARTRATE
  17. BETAMETH VAL [Concomitant]
  18. DIAZEPAM. [Concomitant]
     Active Substance: DIAZEPAM
  19. TYMLOS [Concomitant]
     Active Substance: ABALOPARATIDE
  20. FLUTICASONE. [Concomitant]
     Active Substance: FLUTICASONE
  21. FUROSEMIDE. [Concomitant]
     Active Substance: FUROSEMIDE
  22. PANTOPRAZOLE [Concomitant]
     Active Substance: PANTOPRAZOLE
  23. TRIAMCINOLON OIN [Concomitant]
  24. HYDROXYCHLOR [Concomitant]
     Active Substance: HYDROXYCHLOROQUINE

REACTIONS (2)
  - Cardiac arrest [None]
  - Multiple organ dysfunction syndrome [None]

NARRATIVE: CASE EVENT DATE: 20200902
